FAERS Safety Report 12736741 (Version 4)
Quarter: 2016Q4

REPORT INFORMATION
  Report Type: Spontaneous
  Country: JP (occurrence: JP)
  Receive Date: 20160913
  Receipt Date: 20161009
  Transmission Date: 20170207
  Serious: Yes (Life-Threatening, Other)
  Sender: FDA-Public Use
  Company Number: PHJP2016JP025829

PATIENT
  Age: 45 Year
  Sex: Female
  Weight: 86 kg

DRUGS (1)
  1. VOTRIENT [Suspect]
     Active Substance: PAZOPANIB HYDROCHLORIDE
     Indication: SARCOMA UTERUS
     Dosage: 800 MG, QD
     Route: 048
     Dates: start: 20160826, end: 20160907

REACTIONS (9)
  - Pruritus [Unknown]
  - Pyrexia [Recovered/Resolved]
  - Hepatic function abnormal [Recovered/Resolved]
  - Hyperkalaemia [Recovered/Resolved]
  - Generalised erythema [Unknown]
  - Alanine aminotransferase increased [Unknown]
  - Drug eruption [Recovered/Resolved]
  - Oral mucosal erythema [Unknown]
  - Aspartate aminotransferase increased [Unknown]

NARRATIVE: CASE EVENT DATE: 20160906
